FAERS Safety Report 13341748 (Version 1)
Quarter: 2017Q1

REPORT INFORMATION
  Report Type: Spontaneous
  Country: US (occurrence: US)
  Receive Date: 20170316
  Receipt Date: 20170316
  Transmission Date: 20170428
  Serious: Yes (Other)
  Sender: FDA-Public Use
  Company Number: US-CELLTRION INC.-2016US010464

PATIENT

DRUGS (1)
  1. INFLECTRA [Suspect]
     Active Substance: INFLIXIMAB-DYYB
     Indication: RHEUMATOID ARTHRITIS
     Dosage: 3 MG/KG, UNK (3 INTRAVENOUS INFUSIONS OF 200 MG (3 MG/KG))
     Route: 041
     Dates: start: 2000

REACTIONS (1)
  - Hepatitis [Recovered/Resolved]
